FAERS Safety Report 18822931 (Version 1)
Quarter: 2021Q1

REPORT INFORMATION
  Report Type: Report from Study
  Country: SK (occurrence: SK)
  Receive Date: 20210202
  Receipt Date: 20210202
  Transmission Date: 20210419
  Serious: Yes (Hospitalization)
  Sender: FDA-Public Use
  Company Number: SK-SHIRE-SK201909593

PATIENT

DRUGS (8)
  1. HUMAN IMMUNOGLOBULIN; HYALURONIDASE [Suspect]
     Active Substance: HUMAN IMMUNOGLOBULIN G\HYALURONIDASE RECOMBINANT HUMAN
     Dosage: 20448.20, 4X A WEEK
     Route: 058
     Dates: start: 20190228, end: 20190228
  2. PARALEN [PARACETAMOL] [Concomitant]
     Indication: GASTROENTERITIS
     Dosage: UNK
     Dates: start: 20190224, end: 20190225
  3. ERDOMED [Concomitant]
     Active Substance: ERDOSTEINE
     Indication: CHRONIC SINUSITIS
  4. AERIUS [Concomitant]
     Indication: CHRONIC SINUSITIS
  5. BENELYTE [Concomitant]
     Indication: FLUID REPLACEMENT
     Route: 042
  6. CEFUROXIME. [Concomitant]
     Active Substance: CEFUROXIME
     Indication: PHARYNGITIS
     Route: 042
  7. HUMAN IMMUNOGLOBULIN; HYALURONIDASE [Suspect]
     Active Substance: HUMAN IMMUNOGLOBULIN G\HYALURONIDASE RECOMBINANT HUMAN
     Indication: HYPOGAMMAGLOBULINAEMIA
     Dosage: 142 MILLILITER
     Route: 058
     Dates: start: 20190226, end: 20190226
  8. DIOSMECTITE SIROMED [Concomitant]
     Indication: GASTROENTERITIS
     Dosage: UNK
     Dates: start: 20190224, end: 20190225

REACTIONS (1)
  - Pharyngitis [Recovered/Resolved]

NARRATIVE: CASE EVENT DATE: 20190319
